FAERS Safety Report 24160040 (Version 2)
Quarter: 2024Q3

REPORT INFORMATION
  Report Type: Spontaneous
  Country: US (occurrence: US)
  Receive Date: 20240801
  Receipt Date: 20240911
  Transmission Date: 20241016
  Serious: Yes (Other)
  Sender: STRIDES
  Company Number: US-STRIDES ARCOLAB LIMITED-2024SP009333

PATIENT
  Age: 55 Year
  Sex: Female

DRUGS (4)
  1. RANITIDINE [Suspect]
     Active Substance: RANITIDINE
     Indication: Dyspepsia
     Dosage: UNK, ONCE OR TWICE OR DAY (RANITIDINE (ZANTAC) TABLETS AND CAPSULES) (PRESCRIPTION)
     Route: 065
     Dates: start: 1993, end: 2019
  2. RANITIDINE [Suspect]
     Active Substance: RANITIDINE
     Dosage: UNK, ONCE OR TWICE OR DAY (RANITIDINE (ZANTAC) TABLETS AND CAPSULES) (OVER THE COUNTER)
     Route: 065
     Dates: start: 1993, end: 2019
  3. RANITIDINE [Suspect]
     Active Substance: RANITIDINE
     Dosage: UNK, ONCE OR TWICE OR DAY (RANITIDINE TABLETS AND CAPSULES) (PRESCRIPTION)
     Route: 065
     Dates: start: 2012, end: 2019
  4. RANITIDINE [Suspect]
     Active Substance: RANITIDINE
     Dosage: UNK, ONCE OR TWICE OR DAY (RANITIDINE TABLETS AND CAPSULES) (OVER THE COUNTER)
     Route: 065
     Dates: start: 2012, end: 2019

REACTIONS (1)
  - Breast cancer [Unknown]

NARRATIVE: CASE EVENT DATE: 20200327
